FAERS Safety Report 21386831 (Version 1)
Quarter: 2022Q3

REPORT INFORMATION
  Report Type: Spontaneous
  Country: FR (occurrence: FR)
  Receive Date: 20220928
  Receipt Date: 20220928
  Transmission Date: 20221026
  Serious: Yes (Congenital Anomaly)
  Sender: FDA-Public Use
  Company Number: None

PATIENT
  Sex: Female

DRUGS (5)
  1. EBASTINE [Suspect]
     Active Substance: EBASTINE
     Dosage: 5 MILLIGRAM, QD
     Route: 064
     Dates: start: 20211210
  2. LYRICA [Suspect]
     Active Substance: PREGABALIN
     Dosage: 50 MILLIGRAM, QD
     Route: 064
     Dates: start: 20211210
  3. NEURONTIN [Suspect]
     Active Substance: GABAPENTIN
     Dosage: 600 MILLIGRAM, QD
     Route: 064
     Dates: end: 202201
  4. TYSABRI [Suspect]
     Active Substance: NATALIZUMAB
     Dosage: 1 DOSAGE FORM, QD
     Route: 064
     Dates: start: 20211108, end: 20220415
  5. EBASTINE [Suspect]
     Active Substance: EBASTINE
     Dosage: UNK
     Route: 064
     Dates: start: 20211108

REACTIONS (1)
  - Cleft palate [Recovering/Resolving]

NARRATIVE: CASE EVENT DATE: 20220804
